FAERS Safety Report 25986167 (Version 2)
Quarter: 2025Q4

REPORT INFORMATION
  Report Type: Spontaneous
  Country: US (occurrence: US)
  Receive Date: 20251031
  Receipt Date: 20251104
  Transmission Date: 20260118
  Serious: Yes (Life-Threatening, Hospitalization)
  Sender: 3M
  Company Number: US-3MMEDICAL-2025-US-048911

PATIENT
  Age: 48 Year
  Sex: Female

DRUGS (1)
  1. POVIDONE-IODINE [Suspect]
     Active Substance: POVIDONE-IODINE
     Indication: Preoperative care
     Dosage: SINGLE USE
     Route: 061
     Dates: start: 20250707, end: 20250707

REACTIONS (1)
  - Anaphylactic reaction [Recovered/Resolved]

NARRATIVE: CASE EVENT DATE: 20250707
